FAERS Safety Report 7559769-X (Version None)
Quarter: 2011Q2

REPORT INFORMATION
  Report Type: 
  Country: None (occurrence: None)
  Receive Date: 20110606
  Receipt Date: 20110505
  Transmission Date: 20111010
  Serious: Yes (Other)
  Sender: FDA-Public Use
  Company Number: AEUSA200900017

PATIENT
  Age: 9 Month
  Sex: Male

DRUGS (15)
  1. GAMUNEX [Suspect]
     Indication: COMBINED IMMUNODEFICIENCY
     Dosage: IV, 600 MG/KG; QM; IV, 4 GM; 1X; IV, 800 MG/KG; QW; IV
     Route: 042
     Dates: start: 20090101, end: 20110101
  2. GAMUNEX [Suspect]
     Indication: COMBINED IMMUNODEFICIENCY
     Dosage: IV, 600 MG/KG; QM; IV, 4 GM; 1X; IV, 800 MG/KG; QW; IV
     Route: 042
     Dates: start: 20081217, end: 20090121
  3. GAMUNEX [Suspect]
     Indication: COMBINED IMMUNODEFICIENCY
     Dosage: IV, 600 MG/KG; QM; IV, 4 GM; 1X; IV, 800 MG/KG; QW; IV
     Route: 042
     Dates: start: 20081010, end: 20081107
  4. GAMUNEX [Suspect]
     Indication: COMBINED IMMUNODEFICIENCY
     Dosage: IV, 600 MG/KG; QM; IV, 4 GM; 1X; IV, 800 MG/KG; QW; IV
     Route: 042
     Dates: start: 20081126, end: 20081126
  5. MULTI-VITAMINS [Concomitant]
  6. GAMUNEX [Suspect]
  7. GAMUNEX [Suspect]
  8. PULMICORT [Concomitant]
  9. BACTRIM [Concomitant]
  10. GAMUNEX [Suspect]
  11. GAMUNEX [Suspect]
  12. GAMUNEX [Suspect]
  13. BENADRYL [Concomitant]
  14. GANCICLOVIR [Concomitant]
  15. HYDROCORTISONE [Concomitant]

REACTIONS (17)
  - ALANINE AMINOTRANSFERASE INCREASED [None]
  - HEPATOSPLENOMEGALY [None]
  - ENTEROCOCCAL INFECTION [None]
  - LEUKOCYTOSIS [None]
  - ASPARTATE AMINOTRANSFERASE INCREASED [None]
  - BONE MARROW TRANSPLANT [None]
  - SLEEP APNOEA SYNDROME [None]
  - ASCITES [None]
  - VENOUS RECANALISATION [None]
  - DEEP VEIN THROMBOSIS [None]
  - LUNG DISORDER [None]
  - INFECTION [None]
  - ANTI-HBC IGG ANTIBODY POSITIVE [None]
  - DEVICE RELATED INFECTION [None]
  - HYPERTENSION [None]
  - DELTARETROVIRUS TEST POSITIVE [None]
  - DISSEMINATED CYTOMEGALOVIRAL INFECTION [None]
